FAERS Safety Report 9020034 (Version 1)
Quarter: 2013Q1

REPORT INFORMATION
  Report Type: Spontaneous
  Country: US (occurrence: US)
  Receive Date: 20130119
  Receipt Date: 20130119
  Transmission Date: 20140127
  Serious: Yes (Hospitalization, Other)
  Sender: FDA-Public Use
  Company Number: US-ALLERGAN-1211446US

PATIENT
  Sex: 0

DRUGS (1)
  1. BOTOX? [Suspect]
     Indication: TORTICOLLIS
     Dosage: UNK
     Route: 030
     Dates: start: 20120625, end: 20120625

REACTIONS (7)
  - Asthenia [Unknown]
  - Decreased appetite [Unknown]
  - Myalgia [Unknown]
  - Dysphagia [Unknown]
  - Influenza like illness [Unknown]
  - Nausea [Unknown]
  - Muscular weakness [Unknown]
